FAERS Safety Report 25318425 (Version 3)
Quarter: 2025Q4

REPORT INFORMATION
  Report Type: Spontaneous
  Country: JP (occurrence: JP)
  Receive Date: 20250515
  Receipt Date: 20251017
  Transmission Date: 20260117
  Serious: Yes (Other)
  Sender: MERCK SHARP & DOHME LLC
  Company Number: JP-009507513-2284860

PATIENT
  Age: 38 Year
  Sex: Male

DRUGS (3)
  1. KEYTRUDA [Suspect]
     Active Substance: PEMBROLIZUMAB
     Indication: Bile duct cancer stage IV
     Dosage: 200 MG, ONCE EVERY 3 WEEKS, 1 COURSE
     Route: 041
  2. CISPLATIN [Suspect]
     Active Substance: CISPLATIN
     Indication: Bile duct cancer
     Dosage: TIME INTERVAL: CYCLICAL: 25MG/M2 TWICE EVERY 3 WEEKS
     Route: 042
  3. GEMCITABINE [Suspect]
     Active Substance: GEMCITABINE
     Indication: Bile duct cancer
     Dosage: TIME INTERVAL: CYCLICAL: 1000MG/M2 TWICE EVERY 3 WEEKS
     Route: 042

REACTIONS (1)
  - Cholangitis [Recovering/Resolving]
